FAERS Safety Report 4462248-X (Version None)
Quarter: 2004Q3

REPORT INFORMATION
  Report Type: 
  Country: None (occurrence: None)
  Receive Date: 20040928
  Receipt Date: 20040917
  Transmission Date: 20050211
  Serious: Yes (Life-Threatening, Hospitalization)
  Sender: FDA-Public Use
  Company Number: 04-09-1314

PATIENT
  Sex: Male

DRUGS (4)
  1. METFORMIN HCL [Suspect]
     Indication: DIABETES MELLITUS NON-INSULIN-DEPENDENT
     Dosage: 850 MG TID ORAL
     Route: 048
     Dates: start: 20040525, end: 20040813
  2. NAPROXEN [Concomitant]
  3. BUPRENORPHINE TABLETS [Concomitant]
  4. PARACETAMOL WITH CODEINE TABLETS [Concomitant]

REACTIONS (1)
  - RENAL FAILURE ACUTE [None]
